FAERS Safety Report 9437083 (Version 1)
Quarter: 2013Q3

REPORT INFORMATION
  Report Type: Spontaneous
  Country: CA (occurrence: CA)
  Receive Date: 20130802
  Receipt Date: 20130802
  Transmission Date: 20140515
  Serious: Yes (Hospitalization, Other)
  Sender: FDA-Public Use
  Company Number: CA-ASTELLAS-2013US008025

PATIENT
  Age: 81 Year
  Sex: Male

DRUGS (2)
  1. XTANDI [Suspect]
     Indication: NEOPLASM MALIGNANT
     Dosage: 160 MG, UNKNOWN/D
     Route: 048
     Dates: start: 20130626, end: 20130710
  2. ANTINEOPLASTIC AGENTS [Concomitant]
     Indication: CHEMOTHERAPY
     Dosage: 7 ROUNDS
     Route: 065

REACTIONS (6)
  - Nausea [Unknown]
  - Decreased appetite [Unknown]
  - Constipation [Unknown]
  - Fatigue [Unknown]
  - Asthenia [Unknown]
  - Vomiting [Unknown]
